FAERS Safety Report 7508064-3 (Version None)
Quarter: 2011Q2

REPORT INFORMATION
  Report Type: 
  Country: None (occurrence: None)
  Receive Date: 20110527
  Receipt Date: 20110513
  Transmission Date: 20111010
  Serious: Yes (Hospitalization)
  Sender: FDA-Public Use
  Company Number: US-BAYER-201041461NA

PATIENT
  Sex: Female
  Weight: 81.633 kg

DRUGS (17)
  1. AMILORIDE HYDROCHLORIDE [Concomitant]
     Dosage: 5 MG, UNK
  2. POTASSIUM [POTASSIUM] [Concomitant]
  3. NSAID'S [Concomitant]
  4. ZANTAC [Concomitant]
  5. YASMIN [Suspect]
     Indication: ACNE
  6. FLEXERIL [Concomitant]
  7. XANAX [Concomitant]
  8. YASMIN [Suspect]
     Indication: PREMENSTRUAL SYNDROME
  9. DARVOCET [Concomitant]
  10. YAZ [Suspect]
     Indication: ACNE
  11. YAZ [Suspect]
     Indication: PREMENSTRUAL SYNDROME
  12. LIPITOR [Concomitant]
  13. DIURETICS [Concomitant]
  14. MOTRIN [Concomitant]
  15. DROSPIRENONE AND ETHINYL ESTRADIOL [Suspect]
     Indication: ACNE
  16. DROSPIRENONE AND ETHINYL ESTRADIOL [Suspect]
     Indication: PREMENSTRUAL SYNDROME
  17. WELLBUTRIN [Concomitant]

REACTIONS (4)
  - GALLBLADDER DISORDER [None]
  - BLOOD POTASSIUM ABNORMAL [None]
  - TRANSIENT ISCHAEMIC ATTACK [None]
  - ARRHYTHMIA [None]
